FAERS Safety Report 15821830 (Version 1)
Quarter: 2019Q1

REPORT INFORMATION
  Report Type: Spontaneous
  Country: US (occurrence: US)
  Receive Date: 20190114
  Receipt Date: 20190114
  Transmission Date: 20190417
  Serious: Yes (Other)
  Sender: FDA-Public Use
  Company Number: None

PATIENT
  Age: 91 Year
  Sex: Female
  Weight: 40 kg

DRUGS (1)
  1. CEFTRIAXONE. [Suspect]
     Active Substance: CEFTRIAXONE
     Indication: CHRONIC OBSTRUCTIVE PULMONARY DISEASE
     Route: 040
     Dates: start: 20190103, end: 20190103

REACTIONS (3)
  - Presyncope [None]
  - Cardio-respiratory arrest [None]
  - Bladder disorder [None]

NARRATIVE: CASE EVENT DATE: 20190103
